FAERS Safety Report 15117657 (Version 2)
Quarter: 2020Q2

REPORT INFORMATION
  Report Type: Spontaneous
  Country: DK (occurrence: DK)
  Receive Date: 20180707
  Receipt Date: 20200413
  Transmission Date: 20200713
  Serious: Yes (Disabling, Other)
  Sender: FDA-Public Use
  Company Number: DK-ABBVIE-18K-044-2411291-00

PATIENT
  Age: 56 Year
  Sex: Female
  Weight: 36 kg

DRUGS (8)
  1. TRADOLAN [Concomitant]
     Active Substance: TRAMADOL
     Indication: PAIN
     Dosage: DOSAGE: 1 TABLET P.N. NO MORE THAN 4 TIMES A DAY.
     Route: 048
     Dates: start: 20140429, end: 20180410
  2. ALENDRONIC ACID [Concomitant]
     Active Substance: ALENDRONIC ACID
     Indication: OSTEOPOROSIS
     Dosage: STRENGTH: 70 MG.
     Route: 048
     Dates: start: 20170908
  3. HUMIRA [Suspect]
     Active Substance: ADALIMUMAB
     Indication: CROHN^S DISEASE
     Route: 058
     Dates: start: 20160613, end: 20180605
  4. HUMIRA [Suspect]
     Active Substance: ADALIMUMAB
     Indication: CROHN^S DISEASE
     Route: 058
     Dates: start: 2014
  5. METHOTREXATE. [Concomitant]
     Active Substance: METHOTREXATE
     Indication: CROHN^S DISEASE
     Dosage: STRENGHT: UNKNOWN ?DOSE: UNKNOWN .?START DATE UNKNOWN, BUT AT LEAST BEFORE JUNE 2016
  6. FOLIMET [Concomitant]
     Active Substance: FOLIC ACID
     Indication: VITAMIN SUPPLEMENTATION
     Dosage: STRENGTH: 5 MG.
     Route: 048
     Dates: start: 20140519
  7. EBETREX [Concomitant]
     Active Substance: METHOTREXATE SODIUM
     Indication: CROHN^S DISEASE
     Dosage: DOSAGE: 3/4 ML EACH WEEK.
     Route: 030
     Dates: start: 20140519
  8. CODEINE [Concomitant]
     Active Substance: CODEINE
     Indication: PAIN
     Dosage: DOSAGE: 1 TABLET PER DAY, NO MORE THAN 6 TIMES A DAY.
     Route: 048
     Dates: start: 20151215, end: 20180416

REACTIONS (10)
  - Walking disability [Not Recovered/Not Resolved]
  - Polyneuropathy [Not Recovered/Not Resolved]
  - Arthralgia [Not Recovered/Not Resolved]
  - Paralysis [Not Recovered/Not Resolved]
  - Dysstasia [Unknown]
  - Pain [Not Recovered/Not Resolved]
  - Paraesthesia [Not Recovered/Not Resolved]
  - Sensory disturbance [Not Recovered/Not Resolved]
  - Movement disorder [Not Recovered/Not Resolved]
  - Oedema peripheral [Unknown]

NARRATIVE: CASE EVENT DATE: 2016
